FAERS Safety Report 13411425 (Version 2)
Quarter: 2022Q4

REPORT INFORMATION
  Report Type: Spontaneous
  Country: US (occurrence: US)
  Receive Date: 20170406
  Receipt Date: 20221012
  Transmission Date: 20230113
  Serious: No
  Sender: FDA-Public Use
  Company Number: US-JNJFOC-20170304859

PATIENT
  Age: 11 Year
  Sex: Male

DRUGS (10)
  1. RISPERDAL [Suspect]
     Active Substance: RISPERIDONE
     Indication: Bipolar disorder
     Route: 048
  2. RISPERDAL [Suspect]
     Active Substance: RISPERIDONE
     Indication: Attention deficit hyperactivity disorder
     Dosage: RISPERIDONE DOSE INCREASED TO 1 MG TWICE DAILY
     Route: 048
     Dates: start: 20051206, end: 200610
  3. RISPERDAL [Suspect]
     Active Substance: RISPERIDONE
     Dosage: RISPERIDONE WAS RESTARTED AT LOWER DOSE (0.5 MG, TWICE DAILY)
     Route: 048
     Dates: start: 20061031
  4. RISPERDAL [Suspect]
     Active Substance: RISPERIDONE
     Dosage: RISPERIDONE DOSE INCREASED TO 1 MG TWICE DAILY
     Route: 048
     Dates: start: 20061213
  5. RISPERDAL [Suspect]
     Active Substance: RISPERIDONE
     Route: 048
     Dates: end: 201302
  6. INVEGA [Suspect]
     Active Substance: PALIPERIDONE
     Indication: Product used for unknown indication
     Route: 048
  7. TRILEPTAL [Suspect]
     Active Substance: OXCARBAZEPINE
     Indication: Product used for unknown indication
     Dosage: 600 MG TWICE DAILY
     Route: 065
  8. TRILEPTAL [Suspect]
     Active Substance: OXCARBAZEPINE
     Route: 065
     Dates: end: 201302
  9. TRILEPTAL [Suspect]
     Active Substance: OXCARBAZEPINE
     Dosage: 150 MG TWICE DAILY
     Route: 065
  10. RISPERIDONE [Suspect]
     Active Substance: RISPERIDONE
     Indication: Product used for unknown indication
     Route: 065

REACTIONS (3)
  - Fatigue [Unknown]
  - Hypersomnia [Unknown]
  - Treatment noncompliance [Unknown]

NARRATIVE: CASE EVENT DATE: 20061001
